FAERS Safety Report 13274638 (Version 2)
Quarter: 2017Q2

REPORT INFORMATION
  Report Type: Spontaneous
  Country: BR (occurrence: BR)
  Receive Date: 20170227
  Receipt Date: 20170418
  Transmission Date: 20170830
  Serious: Yes (Hospitalization)
  Sender: FDA-Public Use
  Company Number: BR-B.I. PHARMACEUTICALS,INC./RIDGEFIELD-2017-BI-010016

PATIENT
  Age: 66 Year
  Sex: Male
  Weight: 108 kg

DRUGS (7)
  1. TRAYENTA [Suspect]
     Active Substance: LINAGLIPTIN
     Route: 048
  2. ATENOLOL. [Concomitant]
     Active Substance: ATENOLOL
     Indication: HYPERTENSION
     Route: 048
  3. XARELTO [Concomitant]
     Active Substance: RIVAROXABAN
     Route: 048
     Dates: start: 2016
  4. TRAYENTA [Suspect]
     Active Substance: LINAGLIPTIN
     Indication: TYPE 2 DIABETES MELLITUS
     Route: 048
     Dates: start: 2015
  5. XARELTO [Concomitant]
     Active Substance: RIVAROXABAN
     Indication: INTRACARDIAC THROMBUS
     Route: 048
     Dates: start: 2011
  6. ATACANT HCT [Concomitant]
     Indication: HYPERTENSION
     Dosage: UNIT DOSE/DAILY DOSE: 16/12.5 MILLIGRAM
     Route: 048
     Dates: start: 2014
  7. PANTOPRAZOL [Concomitant]
     Active Substance: PANTOPRAZOLE SODIUM
     Indication: PROPHYLAXIS
     Route: 048
     Dates: start: 2015

REACTIONS (5)
  - Nephrolithiasis [Recovered/Resolved]
  - Incorrect dosage administered [Unknown]
  - Blood glucose fluctuation [Not Recovered/Not Resolved]
  - Blood creatinine increased [Unknown]
  - Drug ineffective [Not Recovered/Not Resolved]

NARRATIVE: CASE EVENT DATE: 20161211
